FAERS Safety Report 15159377 (Version 1)
Quarter: 2018Q3

REPORT INFORMATION
  Report Type: Spontaneous
  Country: US (occurrence: US)
  Receive Date: 20180620
  Receipt Date: 20180620
  Transmission Date: 20181010
  Serious: Yes (Hospitalization)
  Sender: FDA-Public Use
  Company Number: None

PATIENT
  Age: 69 Year
  Sex: Female
  Weight: 88.8 kg

DRUGS (2)
  1. GEMCITABINE HYDROCHLORIDE. [Suspect]
     Active Substance: GEMCITABINE HYDROCHLORIDE
     Dates: end: 20180605
  2. CISPLATIN. [Suspect]
     Active Substance: CISPLATIN
     Dates: end: 20180605

REACTIONS (10)
  - Diarrhoea [None]
  - Vomiting [None]
  - Urinary tract infection [None]
  - Nausea [None]
  - Dysuria [None]
  - Abdominal pain lower [None]
  - Gastrooesophageal reflux disease [None]
  - Pelvic pain [None]
  - Pyuria [None]
  - Abdominal pain [None]

NARRATIVE: CASE EVENT DATE: 20180611
